FAERS Safety Report 7985458-3 (Version None)
Quarter: 2011Q4

REPORT INFORMATION
  Report Type: 
  Country: None (occurrence: None)
  Receive Date: 20111216
  Receipt Date: 20111208
  Transmission Date: 20120403
  Serious: Yes (Other)
  Sender: FDA-Public Use
  Company Number: CHPA2011US017726

PATIENT
  Sex: Female

DRUGS (2)
  1. EXCEDRIN (MIGRAINE) [Suspect]
     Indication: HEADACHE
     Dosage: 1 DF, Q4H
     Route: 048
  2. EXCEDRIN (MIGRAINE) [Suspect]
     Dosage: 1 DF, QD
     Route: 048

REACTIONS (13)
  - SYNOVIAL CYST [None]
  - BURSITIS [None]
  - SWELLING [None]
  - ACCIDENT AT WORK [None]
  - CERVIX CARCINOMA [None]
  - MUSCLE RUPTURE [None]
  - ARTHRITIS [None]
  - JOINT INJURY [None]
  - INCORRECT DRUG ADMINISTRATION DURATION [None]
  - TENDONITIS [None]
  - PAIN [None]
  - OFF LABEL USE [None]
  - OVERDOSE [None]
